FAERS Safety Report 17741735 (Version 1)
Quarter: 2020Q3

REPORT INFORMATION
  Report Type: Other
  Country: ES (occurrence: ES)
  Receive Date: 20200504
  Receipt Date: 20200504
  Transmission Date: 20201104
  Serious: Yes (Hospitalization, Other)
  Sender: FDA-Public Use
  Company Number: ES-VALIDUS PHARMACEUTICALS LLC-ES-2020VAL000362

PATIENT

DRUGS (4)
  1. DEXKETOPROFEN TROMETAMOL [Suspect]
     Active Substance: DEXKETOPROFEN TROMETAMOL
     Indication: PRODUCT USED FOR UNKNOWN INDICATION
     Dosage: 25 MG, BID
     Route: 048
     Dates: start: 20120628, end: 20200408
  2. HYDROCHLOROTHIAZIDE W/TELMISARTAN [Suspect]
     Active Substance: HYDROCHLOROTHIAZIDE\TELMISARTAN
     Indication: PRODUCT USED FOR UNKNOWN INDICATION
     Dosage: 1 DF, QD
     Route: 048
     Dates: start: 20100924, end: 20200408
  3. ETORICOXIB. [Suspect]
     Active Substance: ETORICOXIB
     Indication: PAIN
     Dosage: 60 MG, QD
     Route: 048
     Dates: start: 20200123, end: 20200408
  4. FUROSEMIDE. [Suspect]
     Active Substance: FUROSEMIDE
     Indication: PRODUCT USED FOR UNKNOWN INDICATION
     Dosage: 40 MG, QD
     Route: 048
     Dates: start: 20200319, end: 20200408

REACTIONS (3)
  - Drug interaction [Unknown]
  - Acute kidney injury [Recovered/Resolved]
  - Hyponatraemia [Recovered/Resolved]

NARRATIVE: CASE EVENT DATE: 20200408
